FAERS Safety Report 5070934-6 (Version None)
Quarter: 2006Q3

REPORT INFORMATION
  Report Type: 
  Country: None (occurrence: None)
  Receive Date: 20060804
  Receipt Date: 20060726
  Transmission Date: 20061208
  Serious: Yes (Other)
  Sender: FDA-Public Use
  Company Number: PHNU2006DE02653

PATIENT

DRUGS (1)
  1. LEPONEX [Suspect]
     Route: 048

REACTIONS (2)
  - HYPERKALAEMIA [None]
  - RENAL IMPAIRMENT [None]
